FAERS Safety Report 6229028-6 (Version None)
Quarter: 2009Q2

REPORT INFORMATION
  Report Type: 
  Country: None (occurrence: None)
  Receive Date: 20090615
  Receipt Date: 20090604
  Transmission Date: 20091009
  Serious: Yes (Death, Other)
  Sender: FDA-Public Use
  Company Number: US-BIOGENIDEC-2009BI012532

PATIENT
  Sex: Female

DRUGS (1)
  1. AVONEX [Suspect]
     Indication: MULTIPLE SCLEROSIS
     Route: 030
     Dates: start: 20010211, end: 20090109

REACTIONS (4)
  - CARDIOVASCULAR DISORDER [None]
  - DEMENTIA [None]
  - MULTIPLE SCLEROSIS [None]
  - NASOPHARYNGITIS [None]
